FAERS Safety Report 9110538 (Version 1)
Quarter: 2013Q1

REPORT INFORMATION
  Report Type: Spontaneous
  Country: US (occurrence: US)
  Receive Date: 20130219
  Receipt Date: 20130219
  Transmission Date: 20140127
  Serious: No
  Sender: FDA-Public Use
  Company Number: US-BRACCO-008544

PATIENT
  Sex: 0

DRUGS (2)
  1. ISOVUE-M [Suspect]
     Indication: SPINAL MYELOGRAM
     Route: 037
     Dates: start: 20120828, end: 20120828
  2. ISOVUE-M [Suspect]
     Indication: PRODUCT USED FOR UNKNOWN INDICATION
     Route: 037
     Dates: start: 20120828, end: 20120828

REACTIONS (2)
  - Drug ineffective [Unknown]
  - Extravasation [Unknown]
